FAERS Safety Report 7750172-6 (Version None)
Quarter: 2011Q3

REPORT INFORMATION
  Report Type: 
  Country: None (occurrence: None)
  Receive Date: 20110914
  Receipt Date: 20110914
  Transmission Date: 20111222
  Serious: No
  Sender: FDA-Public Use
  Company Number: None

PATIENT
  Age: 32 Year
  Sex: Female

DRUGS (1)
  1. ISOVUE-300 [Suspect]

REACTIONS (3)
  - URTICARIA [None]
  - RASH [None]
  - PRURITUS [None]
